FAERS Safety Report 10229711 (Version 2)
Quarter: 2014Q2

REPORT INFORMATION
  Report Type: Report from Study
  Country: MX (occurrence: MX)
  Receive Date: 20140611
  Receipt Date: 20140611
  Transmission Date: 20141212
  Serious: Yes (Other)
  Sender: FDA-Public Use
  Company Number: PHHY2014MX014695

PATIENT
  Age: 60 Year
  Sex: Female

DRUGS (4)
  1. ONBREZ [Suspect]
     Indication: ASTHMA
     Dosage: 1 DF DAILY
     Route: 055
     Dates: start: 201401
  2. ONBREZ [Suspect]
     Indication: OFF LABEL USE
  3. SINGULAIR [Concomitant]
     Indication: BRONCHIAL DISORDER
     Dosage: 1 UKN, DAILY
     Dates: start: 201401
  4. COMBIVENT [Concomitant]
     Dosage: 1 DF, DAILY

REACTIONS (3)
  - Asthmatic crisis [Recovered/Resolved]
  - Dysphonia [Recovered/Resolved]
  - Bronchial disorder [Recovered/Resolved]
